FAERS Safety Report 15078470 (Version 1)
Quarter: 2018Q2

REPORT INFORMATION
  Report Type: Spontaneous
  Country: IN (occurrence: IN)
  Receive Date: 20180627
  Receipt Date: 20180627
  Transmission Date: 20180711
  Serious: Yes (Other)
  Sender: FDA-Public Use
  Company Number: IN-MYLANLABS-2018M1046161

PATIENT
  Age: 61 Year
  Sex: Male

DRUGS (2)
  1. DICLOFENAC [Suspect]
     Active Substance: DICLOFENAC
     Indication: DIABETIC RETINAL OEDEMA
     Dosage: 450 MICROG/0.03 ML; THE COMMERCIALLY AVAILABLE 0.2ML OF DICLOFENAC 75 MG/ML AQUEOUS SOLUTION WAS ...
     Route: 050
  2. TRIAMCINOLONE [Suspect]
     Active Substance: TRIAMCINOLONE
     Indication: DIABETIC RETINAL OEDEMA
     Route: 050

REACTIONS (5)
  - Condition aggravated [Recovered/Resolved]
  - Visual acuity reduced [Not Recovered/Not Resolved]
  - Glaucoma [Unknown]
  - Retinal toxicity [Recovered/Resolved]
  - Cystoid macular oedema [Recovered/Resolved]
